FAERS Safety Report 7281277-4 (Version None)
Quarter: 2011Q1

REPORT INFORMATION
  Report Type: 
  Country: None (occurrence: None)
  Receive Date: 20110208
  Receipt Date: 20110203
  Transmission Date: 20110831
  Serious: Yes (Other)
  Sender: FDA-Public Use
  Company Number: CHPA2011GB00682

PATIENT
  Sex: Female

DRUGS (2)
  1. PARACETAMOL [Suspect]
     Dosage: 12.5 G, UNK
     Route: 065
  2. IBUPROFEN [Suspect]
     Dosage: 3.2 - 12.8 G, UNK
     Route: 065

REACTIONS (2)
  - MULTIPLE DRUG OVERDOSE [None]
  - DRUG EXPOSURE DURING PREGNANCY [None]
